FAERS Safety Report 4318312-9 (Version None)
Quarter: 2004Q1

REPORT INFORMATION
  Report Type: 
  Country: None (occurrence: None)
  Receive Date: 20040317
  Receipt Date: 20020624
  Transmission Date: 20041129
  Serious: Yes (Hospitalization)
  Sender: FDA-Public Use
  Company Number: WAES 0206USA02429

PATIENT
  Age: 83 Year
  Sex: Male
  Weight: 55 kg

DRUGS (5)
  1. FOSAMAX [Suspect]
     Indication: OSTEOPOROSIS
     Route: 048
     Dates: start: 20020419, end: 20020601
  2. ALFACALCIDOL [Concomitant]
     Indication: OSTEOPOROSIS
     Route: 048
     Dates: start: 19950708, end: 20020601
  3. AMLODIPINE BESYLATE [Concomitant]
     Indication: HYPERTENSION
     Dates: start: 19960410, end: 20020601
  4. DOXAZOSIN MESYLATE [Concomitant]
     Indication: HYPERTENSION
     Dates: start: 19990413, end: 20020601
  5. MECOBALAMIN [Concomitant]
     Indication: BACK PAIN
     Dates: start: 20020419, end: 20020601

REACTIONS (5)
  - ADENOCARCINOMA [None]
  - ANAEMIA [None]
  - GASTRIC CANCER [None]
  - GASTRIC ULCER HAEMORRHAGE [None]
  - RESTLESSNESS [None]
